FAERS Safety Report 23604887 (Version 1)
Quarter: 2024Q1

REPORT INFORMATION
  Report Type: Spontaneous
  Country: US (occurrence: US)
  Receive Date: 20240307
  Receipt Date: 20240307
  Transmission Date: 20240410
  Serious: No
  Sender: FDA-Public Use
  Company Number: US-IMMUNOGEN, INC.-US-IMGN-24-00045

PATIENT
  Age: 67 Year
  Sex: Female

DRUGS (1)
  1. ELAHERE [Suspect]
     Active Substance: MIRVETUXIMAB SORAVTANSINE-GYNX
     Indication: Product used for unknown indication
     Dosage: UNK UNK, 3W, 2 DOSES RECEIVED
     Route: 042
     Dates: start: 20231121

REACTIONS (1)
  - Keratopathy [Unknown]

NARRATIVE: CASE EVENT DATE: 20231221
